FAERS Safety Report 10891136 (Version 2)
Quarter: 2015Q3

REPORT INFORMATION
  Report Type: Other
  Country: IT (occurrence: IT)
  Receive Date: 20150305
  Receipt Date: 20150729
  Transmission Date: 20151125
  Serious: Yes (Other)
  Sender: FDA-Public Use
  Company Number: IT-SYMPLMED PHARMACEUTICALS-2015SYMPLMED000003

PATIENT

DRUGS (3)
  1. COVERLAM [Suspect]
     Active Substance: AMLODIPINE BESYLATE\PERINDOPRIL ARGININE
     Indication: HYPERTENSION
     Dosage: 1 (5 MG/10 MG) TABLET QD
     Route: 048
     Dates: start: 20150210, end: 20150213
  2. ZOLPIDEM TARTRATE. [Concomitant]
     Active Substance: ZOLPIDEM TARTRATE
     Indication: PRODUCT USED FOR UNKNOWN INDICATION
     Dosage: UNKNOWN
  3. LODOZ [Suspect]
     Active Substance: BISOPROLOL FUMARATE\HYDROCHLOROTHIAZIDE
     Indication: PRODUCT USED FOR UNKNOWN INDICATION
     Dosage: 0.5 (2.5 MG/6.5 MG) TABLET QD
     Route: 048
     Dates: start: 20150210, end: 20150213

REACTIONS (6)
  - Face oedema [Recovering/Resolving]
  - Erythema [Recovering/Resolving]
  - Hypertensive crisis [Recovering/Resolving]
  - Asthenia [Recovering/Resolving]
  - Oral mucosal blistering [Recovering/Resolving]
  - Retching [Recovering/Resolving]

NARRATIVE: CASE EVENT DATE: 20150213
